FAERS Safety Report 15934766 (Version 1)
Quarter: 2019Q1

REPORT INFORMATION
  Report Type: Spontaneous
  Country: PT (occurrence: PT)
  Receive Date: 20190207
  Receipt Date: 20190207
  Transmission Date: 20190417
  Serious: Yes (Other)
  Sender: FDA-Public Use
  Company Number: PT-TEVA-2019-PT-1008075

PATIENT
  Age: 77 Year
  Sex: Male
  Weight: 78 kg

DRUGS (1)
  1. ROSUVASTATIN. [Suspect]
     Active Substance: ROSUVASTATIN
     Indication: PRODUCT USED FOR UNKNOWN INDICATION
     Dosage: 5 MILLIGRAM DAILY; 5MG 1X PER DAY AT NIGHT
     Route: 048
     Dates: start: 20180911, end: 20190115

REACTIONS (3)
  - Throat irritation [Unknown]
  - Salivary hypersecretion [Unknown]
  - Oesophageal irritation [Unknown]

NARRATIVE: CASE EVENT DATE: 20180915
